FAERS Safety Report 4794459-8 (Version None)
Quarter: 2005Q4

REPORT INFORMATION
  Report Type: 
  Country: None (occurrence: None)
  Receive Date: 20051011
  Receipt Date: 20050929
  Transmission Date: 20060501
  Serious: Yes (Death)
  Sender: FDA-Public Use
  Company Number: SE-BRISTOL-MYERS SQUIBB COMPANY-13125752

PATIENT
  Age: 67 Year
  Sex: Female

DRUGS (2)
  1. FUNGIZONE [Suspect]
     Indication: FUNGAL INFECTION
  2. FUNGIZONE [Suspect]
     Indication: CLOSTRIDIAL INFECTION

REACTIONS (1)
  - HEPATIC NECROSIS [None]
